FAERS Safety Report 8454406-4 (Version None)
Quarter: 2012Q2

REPORT INFORMATION
  Report Type: 
  Country: None (occurrence: None)
  Receive Date: 20120621
  Receipt Date: 20120613
  Transmission Date: 20120825
  Serious: Yes (Hospitalization)
  Sender: FDA-Public Use
  Company Number: US-BIOGENIDEC-2011BI024560

PATIENT
  Age: 62 Year
  Sex: Female

DRUGS (3)
  1. ASTHMA MEDICATION NOS [Concomitant]
     Indication: ASTHMA
  2. DEPRESSION MEDICATION NOS [Concomitant]
     Indication: DEPRESSION
  3. AVONEX [Suspect]
     Indication: MULTIPLE SCLEROSIS
     Route: 030
     Dates: start: 20101101, end: 20120509

REACTIONS (29)
  - AGRAPHIA [None]
  - COORDINATION ABNORMAL [None]
  - INSOMNIA [None]
  - ALOPECIA [None]
  - VOMITING [None]
  - FATIGUE [None]
  - GASTROOESOPHAGEAL REFLUX DISEASE [None]
  - SPEECH DISORDER [None]
  - APHAGIA [None]
  - PAIN [None]
  - HEADACHE [None]
  - PAIN IN EXTREMITY [None]
  - GAIT DISTURBANCE [None]
  - FEELING COLD [None]
  - BONE PAIN [None]
  - DIZZINESS [None]
  - ASTHENIA [None]
  - TREMOR [None]
  - CENTRAL NERVOUS SYSTEM LESION [None]
  - ANXIETY [None]
  - DEPRESSION [None]
  - INFLUENZA LIKE ILLNESS [None]
  - GASTRIC INFECTION [None]
  - ASTHMA [None]
  - CHEST PAIN [None]
  - ANOSMIA [None]
  - AGEUSIA [None]
  - SKIN DISCOLOURATION [None]
  - FEELING HOT [None]
